FAERS Safety Report 18575407 (Version 1)
Quarter: 2020Q4

REPORT INFORMATION
  Report Type: Spontaneous
  Country: GB (occurrence: GB)
  Receive Date: 20201203
  Receipt Date: 20201203
  Transmission Date: 20210114
  Serious: Yes (Other)
  Sender: FDA-Public Use
  Company Number: GB-MYLANLABS-2020M1098214

PATIENT
  Sex: Female

DRUGS (8)
  1. PRAVASTATIN. [Suspect]
     Active Substance: PRAVASTATIN
     Indication: PRODUCT USED FOR UNKNOWN INDICATION
     Dosage: 10 MILLIGRAM
  2. SALBUTAMOL [Concomitant]
     Active Substance: ALBUTEROL
     Dosage: FOR 20 YEARS.
  3. QVAR [Concomitant]
     Active Substance: BECLOMETHASONE DIPROPIONATE
     Dosage: ABOUT 20 YRS DOSE INCREASED ABOUT 2 YRS AGO
  4. TRIMETHOPRIM. [Concomitant]
     Active Substance: TRIMETHOPRIM
     Indication: URINARY TRACT INFECTION
     Dosage: 100 MILLIGRAM, QD
  5. LEVOTHYROXINE. [Concomitant]
     Active Substance: LEVOTHYROXINE
     Indication: THYROIDECTOMY
     Dosage: FOR ABOUT 6 YEARS.
  6. MOMETASONE [Concomitant]
     Active Substance: MOMETASONE
     Indication: ASTHMA
     Dosage: FOR ABOUT 6 YEARS.
  7. DOSULEPIN HYDROCHLORIDE [Concomitant]
     Active Substance: DOTHIEPIN HYDROCHLORIDE
     Indication: DEPRESSION
     Dosage: FOR 30 YEARS.
  8. INFLUENZA VACCINE INACT [Suspect]
     Active Substance: INFLUENZA VIRUS VACCINE
     Indication: INFLUENZA IMMUNISATION
     Dosage: UNK

REACTIONS (4)
  - Delirium [Recovered/Resolved]
  - Decreased appetite [Recovered/Resolved]
  - Pruritus [Recovered/Resolved]
  - Hypersomnia [Recovered/Resolved]
